FAERS Safety Report 7268782-1 (Version None)
Quarter: 2011Q1

REPORT INFORMATION
  Report Type: 
  Country: None (occurrence: None)
  Receive Date: 20110201
  Receipt Date: 20110129
  Transmission Date: 20110831
  Serious: Yes (Death)
  Sender: FDA-Public Use
  Company Number: PHHY2011US07171

PATIENT
  Sex: Female
  Weight: 91 kg

DRUGS (1)
  1. EXJADE [Suspect]
     Indication: ANAEMIA OF CHRONIC DISEASE
     Dosage: 1500 MG, QD
     Route: 048
     Dates: start: 20090101

REACTIONS (1)
  - DEATH [None]
